FAERS Safety Report 9528474 (Version 1)
Quarter: 2013Q1

REPORT INFORMATION
  Report Type: Spontaneous
  Country: US (occurrence: None)
  Receive Date: 20130314
  Receipt Date: 20130314
  Transmission Date: 20140127
  Serious: No
  Sender: FDA-Public Use
  Company Number: 1208USA008092

PATIENT
  Age: 57 Year
  Sex: Male

DRUGS (4)
  1. RIBAVIRIN [Suspect]
     Indication: CHRONIC HEPATITIS C
     Route: 048
     Dates: start: 20120310
  2. BOCEPREVIR [Suspect]
     Indication: CHRONIC HEPATITIS C
     Dates: start: 20120310
  3. PEGASYS (PEGINTERFERON ALFA-2A) [Suspect]
     Indication: CHRONIC HEPATITIS C
     Dates: start: 20120310
  4. DARBEPOETIN ALFA [Suspect]
     Indication: CHRONIC HEPATITIS C
     Dates: start: 20120522

REACTIONS (11)
  - White blood cell count decreased [None]
  - Haemoglobin decreased [None]
  - Dysgeusia [None]
  - Parosmia [None]
  - Eye pruritus [None]
  - Dysgeusia [None]
  - Back pain [None]
  - Renal pain [None]
  - Dehydration [None]
  - Anaemia [None]
  - Asthenia [None]
